FAERS Safety Report 25028915 (Version 2)
Quarter: 2025Q1

REPORT INFORMATION
  Report Type: Spontaneous
  Country: US (occurrence: US)
  Receive Date: 20250302
  Receipt Date: 20250310
  Transmission Date: 20250409
  Serious: No
  Sender: BAUSCH AND LOMB
  Company Number: US-BAUSCHBL-2025BNL003044

PATIENT
  Age: 91 Year
  Sex: Male

DRUGS (1)
  1. ALAWAY [Suspect]
     Active Substance: KETOTIFEN FUMARATE
     Indication: Eye pruritus
     Dosage: 1 GTT, SINGLE
     Route: 047
     Dates: start: 20250217

REACTIONS (3)
  - Eye discharge [Unknown]
  - Product residue present [Unknown]
  - Product quality issue [Unknown]

NARRATIVE: CASE EVENT DATE: 20250201
